FAERS Safety Report 11182097 (Version 1)
Quarter: 2015Q2

REPORT INFORMATION
  Report Type: Spontaneous
  Country: DE (occurrence: DE)
  Receive Date: 20150611
  Receipt Date: 20150611
  Transmission Date: 20150821
  Serious: Yes (Other)
  Sender: FDA-Public Use
  Company Number: DE-GILEAD-2015-0157654

PATIENT
  Sex: Male

DRUGS (12)
  1. NEPRESOL                           /00007602/ [Concomitant]
     Active Substance: DIHYDRALAZINE SULFATE
  2. JANUVIA [Concomitant]
     Active Substance: SITAGLIPTIN PHOSPHATE
  3. PANTOPRAZOLE SODIUM. [Concomitant]
     Active Substance: PANTOPRAZOLE SODIUM
  4. EUTHYROX [Concomitant]
     Active Substance: LEVOTHYROXINE SODIUM
     Dosage: 50 UG, UNK
  5. MOXONIDINE [Concomitant]
     Active Substance: MOXONIDINE
  6. NOVAMINSULFON [Concomitant]
     Active Substance: METAMIZOLE
  7. TORASEMIDE [Concomitant]
     Active Substance: TORSEMIDE
  8. RANOLAZINE [Suspect]
     Active Substance: RANOLAZINE
     Indication: CARDIAC FAILURE
     Dosage: 375 MG, BID
     Route: 048
     Dates: start: 20140915, end: 20141027
  9. SIMVASTATIN. [Concomitant]
     Active Substance: SIMVASTATIN
     Dosage: 20 MG, UNK
  10. METOPROLOL [Concomitant]
     Active Substance: METOPROLOL
  11. ALLOPURINOL. [Concomitant]
     Active Substance: ALLOPURINOL
  12. AMLODIPINE [Concomitant]
     Active Substance: AMLODIPINE BESYLATE

REACTIONS (3)
  - Off label use [Recovered/Resolved]
  - Dyspnoea [Recovered/Resolved]
  - Condition aggravated [Recovered/Resolved]

NARRATIVE: CASE EVENT DATE: 20140915
